FAERS Safety Report 10004344 (Version 1)
Quarter: 2014Q1

REPORT INFORMATION
  Report Type: Report from Study
  Country: US (occurrence: US)
  Receive Date: 20140312
  Receipt Date: 20140312
  Transmission Date: 20141002
  Serious: No
  Sender: FDA-Public Use
  Company Number: PHEH2014US004958

PATIENT
  Age: 49 Year
  Sex: Female

DRUGS (1)
  1. TASIGNA [Suspect]
     Indication: ILL-DEFINED DISORDER
     Dosage: 200 MG, DAILY
     Route: 048
     Dates: start: 20140210

REACTIONS (1)
  - Food interaction [Not Recovered/Not Resolved]
